FAERS Safety Report 4838912-7 (Version None)
Quarter: 2005Q4

REPORT INFORMATION
  Report Type: 
  Country: None (occurrence: None)
  Receive Date: 20051129
  Receipt Date: 20050809
  Transmission Date: 20060501
  Serious: No
  Sender: FDA-Public Use
  Company Number: US-GLAXOSMITHKLINE-A0569539A

PATIENT
  Age: 76 Year
  Sex: Male

DRUGS (7)
  1. EPZICOM [Suspect]
     Dosage: 1TAB PER DAY
     Route: 048
  2. ACETAMINOPHEN [Concomitant]
  3. ATENOLOL [Concomitant]
  4. DOXAZOSIN [Concomitant]
  5. FUROSEMIDE [Concomitant]
  6. GABAPENTIN [Concomitant]
  7. TRAZODONE [Concomitant]

REACTIONS (1)
  - BLOOD CREATININE INCREASED [None]
